FAERS Safety Report 24862527 (Version 1)
Quarter: 2025Q1

REPORT INFORMATION
  Report Type: Spontaneous
  Country: US (occurrence: US)
  Receive Date: 20250120
  Receipt Date: 20250120
  Transmission Date: 20250409
  Serious: No
  Sender: Kenvue
  Company Number: US-KENVUE-20241207351

PATIENT

DRUGS (2)
  1. MENS ROGAINE EXTRA STRENGTH [Suspect]
     Active Substance: MINOXIDIL
     Indication: Product used for unknown indication
     Route: 061
  2. cleverman^s version [Concomitant]
     Route: 065

REACTIONS (4)
  - Application site pain [Unknown]
  - Application site erythema [Unknown]
  - Application site irritation [Unknown]
  - Secretion discharge [Unknown]
